FAERS Safety Report 5533125-8 (Version None)
Quarter: 2007Q4

REPORT INFORMATION
  Report Type: 
  Country: None (occurrence: None)
  Receive Date: 20071204
  Receipt Date: 20071126
  Transmission Date: 20080405
  Serious: Yes (Hospitalization)
  Sender: FDA-Public Use
  Company Number: US-AVENTIS-200717763US

PATIENT
  Age: 72 Year
  Sex: Female

DRUGS (11)
  1. LANTUS [Suspect]
     Dates: start: 20060701
  2. LANTUS [Suspect]
  3. OPTICLIK (INSULIN INJECTION PEN) [Suspect]
  4. HYZAAR [Concomitant]
     Dosage: DOSE: UNK
  5. COUMADIN [Concomitant]
     Dosage: DOSE: UNK
  6. PROTONIX [Concomitant]
     Dosage: DOSE: UNK
  7. TRAVATAN [Concomitant]
     Dosage: DOSE: UNK
     Route: 047
  8. PREDNISONE EYE DROPS [Concomitant]
     Dosage: DOSE: UNK
     Route: 047
  9. ASCORBIC ACID [Concomitant]
     Dosage: DOSE: UNK
  10. POTASSIUM CHLORIDE [Concomitant]
     Dosage: DOSE: UNK
  11. MSM [Concomitant]
     Dosage: DOSE: UNK

REACTIONS (2)
  - BLOOD GLUCOSE INCREASED [None]
  - THROMBOSIS [None]
